FAERS Safety Report 7265471-4 (Version None)
Quarter: 2011Q1

REPORT INFORMATION
  Report Type: 
  Country: None (occurrence: None)
  Receive Date: 20110131
  Receipt Date: 20110125
  Transmission Date: 20110831
  Serious: Yes (Death, Hospitalization)
  Sender: FDA-Public Use
  Company Number: PHHY2010IN82557

PATIENT
  Sex: Male

DRUGS (4)
  1. HYDROXYUREA [Concomitant]
  2. BUSULFAN [Concomitant]
  3. GLEEVEC [Suspect]
     Indication: CHRONIC MYELOID LEUKAEMIA
     Dosage: 400 MG, DAILY
     Route: 048
     Dates: start: 20100515, end: 20100601
  4. GLEEVEC [Suspect]
     Dosage: 400 MG, QOD
     Dates: start: 20100602, end: 20100701

REACTIONS (9)
  - HEMIPLEGIA [None]
  - INFECTION [None]
  - MALARIA [None]
  - PYREXIA [None]
  - VOMITING [None]
  - CEREBROVASCULAR ACCIDENT [None]
  - CEREBRAL THROMBOSIS [None]
  - ANAEMIA [None]
  - DIARRHOEA [None]
